FAERS Safety Report 5771891-7 (Version None)
Quarter: 2008Q2

REPORT INFORMATION
  Report Type: 
  Country: None (occurrence: None)
  Receive Date: 20080613
  Receipt Date: 20080610
  Transmission Date: 20081010
  Serious: Yes (Hospitalization)
  Sender: FDA-Public Use
  Company Number: B0524614A

PATIENT
  Age: 77 Year
  Sex: Female

DRUGS (6)
  1. CARVEDILOL [Suspect]
     Indication: DRUG USE FOR UNKNOWN INDICATION
     Dosage: 3.125MG TWICE PER DAY
     Route: 048
     Dates: start: 20080213, end: 20080217
  2. ALDACTONE [Suspect]
     Indication: DRUG USE FOR UNKNOWN INDICATION
     Dosage: 25MG ALTERNATE DAYS
     Route: 048
     Dates: start: 20080110, end: 20080319
  3. ACETAMINOPHEN [Concomitant]
     Dates: end: 20080505
  4. HEMIGOXINE NATIVELLE [Concomitant]
     Dates: start: 20080110
  5. LASILIX [Concomitant]
     Dates: start: 20080110
  6. PERINDOPRIL ERBUMINE [Concomitant]
     Dates: start: 20080110, end: 20080319

REACTIONS (13)
  - BLOOD IMMUNOGLOBULIN E INCREASED [None]
  - DERMATITIS EXFOLIATIVE [None]
  - DRY SKIN [None]
  - ECZEMA [None]
  - EOSINOPHILIA [None]
  - EYELID OEDEMA [None]
  - LIP OEDEMA [None]
  - LYMPHADENOPATHY [None]
  - LYMPHOMA [None]
  - RASH [None]
  - RASH ERYTHEMATOUS [None]
  - SKIN EXFOLIATION [None]
  - SKIN HYPERTROPHY [None]
